FAERS Safety Report 19271656 (Version 2)
Quarter: 2021Q2

REPORT INFORMATION
  Report Type: Spontaneous
  Country: DE (occurrence: DE)
  Receive Date: 20210519
  Receipt Date: 20210608
  Transmission Date: 20210717
  Serious: Yes (Other)
  Sender: FDA-Public Use
  Company Number: DE-AUROBINDO-AUR-APL-2021-019767

PATIENT
  Age: 63 Year
  Sex: Male

DRUGS (16)
  1. GASTROZEPIN [Concomitant]
     Active Substance: PIRENZEPINE HYDROCHLORIDE
     Indication: PRODUCT USED FOR UNKNOWN INDICATION
     Dosage: 1 DOSAGE FORM, ONCE A DAY ((50)1 TABLET, 1 /DAY)
     Route: 048
  2. LAMOTRIGIN [Concomitant]
     Active Substance: LAMOTRIGINE
     Indication: PRODUCT USED FOR UNKNOWN INDICATION
     Dosage: 5 DOSAGE FORM, ONCE A DAY(5 TABLET, 1 /DAY (25))
     Route: 048
  3. TEGRETAL RETARD [Concomitant]
     Active Substance: CARBAMAZEPINE
     Indication: PRODUCT USED FOR UNKNOWN INDICATION
     Dosage: 2 DOSAGE FORM, ONCE A DAY (1 TABLET, 2 /DAY (200))
     Route: 048
  4. VIGANTOL [COLECALCIFEROL] [Suspect]
     Active Substance: CHOLECALCIFEROL
     Indication: PRODUCT USED FOR UNKNOWN INDICATION
     Dosage: 1 DOSAGE FORM, ONCE A DAY(1 TABLET MIX?UP)
     Route: 048
     Dates: start: 20210409, end: 20210409
  5. METOPROLOL. [Suspect]
     Active Substance: METOPROLOL
     Indication: PRODUCT USED FOR UNKNOWN INDICATION
     Dosage: 5 MILLIGRAM, UNK (1 TABLET MIX?UP)
     Route: 048
  6. METOPROLOL. [Suspect]
     Active Substance: METOPROLOL
     Dosage: 47.5 MILLIGRAM, 47.5  (1 TABLET MIXUP)
     Route: 048
     Dates: start: 20210409, end: 20210409
  7. ORFIRIL [Concomitant]
     Active Substance: VALPROATE SODIUM
     Indication: PRODUCT USED FOR UNKNOWN INDICATION
     Dosage: 300 (3 TABLET)
     Route: 048
  8. CLOZAPINE TABLETS [Suspect]
     Active Substance: CLOZAPINE
     Indication: PRODUCT USED FOR UNKNOWN INDICATION
     Dosage: UNK, ONCE A DAY (100 (1 TABLET MIX?UP))
     Route: 048
     Dates: start: 20210409, end: 20210409
  9. AKINETON [Suspect]
     Active Substance: BIPERIDEN HYDROCHLORIDE
     Indication: PRODUCT USED FOR UNKNOWN INDICATION
     Dosage: UNK, ONCE A DAY(4 (1 TABLET MIX?UP))
     Route: 048
     Dates: start: 20210409, end: 20210409
  10. ORFIRIL [Suspect]
     Active Substance: VALPROATE SODIUM
     Indication: PRODUCT USED FOR UNKNOWN INDICATION
     Dosage: UNK, ONCE A DAY (1 TABLET MIX?UP)
     Route: 048
     Dates: start: 20210409, end: 20210409
  11. PANTOPRAZOLE GASTRO?RESISTANT TABLET [Suspect]
     Active Substance: PANTOPRAZOLE SODIUM
     Indication: PRODUCT USED FOR UNKNOWN INDICATION
     Dosage: UNK, ONCE A DAY (1 TABLET MIX?UP)
     Route: 048
     Dates: start: 20210409, end: 20210409
  12. HALDOL [Suspect]
     Active Substance: HALOPERIDOL
     Indication: PRODUCT USED FOR UNKNOWN INDICATION
     Dosage: UNK, ONCE A DAY (5 (1 TABLET MIX?UP))
     Route: 048
     Dates: start: 20210409, end: 20210409
  13. ORFIRIL [Concomitant]
     Active Substance: VALPROATE SODIUM
     Dosage: 500 (1 TABLET)
     Route: 048
  14. PIPAMPERON [Suspect]
     Active Substance: PIPAMPERONE HYDROCHLORIDE
     Indication: PRODUCT USED FOR UNKNOWN INDICATION
     Dosage: UNK UNK, ONCE A DAY (1 TABLET MIX?UP )
     Route: 048
     Dates: start: 20210409, end: 20210409
  15. LEVETIRACETAM. [Concomitant]
     Active Substance: LEVETIRACETAM
     Indication: PRODUCT USED FOR UNKNOWN INDICATION
     Dosage: 2500 MILLIGRAM, ONCE A DAY (2.5 TABLET, 1 /DAY (1000 MG))
     Route: 048
  16. LAMOTRIGIN [Concomitant]
     Active Substance: LAMOTRIGINE
     Dosage: 2 DOSAGE FORM, ONCE A DAY(2 TABLET, 1 /DAY (100))
     Route: 048
     Dates: start: 20210409, end: 20210409

REACTIONS (7)
  - Seizure [Recovering/Resolving]
  - Sopor [Recovering/Resolving]
  - Accidental exposure to product [Unknown]
  - Exposure via ingestion [Unknown]
  - Wrong patient received product [Unknown]
  - Disorientation [Recovering/Resolving]
  - Generalised tonic-clonic seizure [Recovered/Resolved]

NARRATIVE: CASE EVENT DATE: 20210409
